FAERS Safety Report 4753343-6 (Version None)
Quarter: 2005Q3

REPORT INFORMATION
  Report Type: 
  Country: None (occurrence: None)
  Receive Date: 20050826
  Receipt Date: 20050817
  Transmission Date: 20060218
  Serious: Yes (Hospitalization, Other)
  Sender: FDA-Public Use
  Company Number: JP-JNJFOC-20040104295

PATIENT
  Sex: Female
  Weight: 50 kg

DRUGS (17)
  1. REMICADE [Suspect]
     Dosage: 150MG
     Route: 041
  2. REMICADE [Suspect]
     Route: 041
  3. REMICADE [Suspect]
     Indication: RHEUMATOID ARTHRITIS
     Route: 041
  4. RHEUMATREX [Suspect]
     Route: 048
  5. RHEUMATREX [Suspect]
     Route: 048
  6. RHEUMATREX [Suspect]
     Indication: RHEUMATOID ARTHRITIS
     Route: 048
  7. RIMATIL [Concomitant]
     Route: 048
     Dates: start: 20020221
  8. INFREE [Concomitant]
     Route: 048
     Dates: start: 20010806
  9. MOHRUS TAPE [Concomitant]
     Route: 065
     Dates: start: 20010806
  10. FOLIAMIN [Concomitant]
     Route: 048
  11. FOLIAMIN [Concomitant]
     Indication: PROPHYLAXIS
     Route: 048
  12. ZANTAC [Concomitant]
     Route: 048
     Dates: start: 20010903
  13. MAGNESIUM OXIDE [Concomitant]
     Indication: GASTROINTESTINAL DISORDER
     Route: 048
     Dates: start: 20010806
  14. VOLTAREN [Concomitant]
     Indication: RHEUMATOID ARTHRITIS
     Route: 054
  15. KETOPROFEN [Concomitant]
     Indication: RHEUMATOID ARTHRITIS
     Route: 065
  16. PEON [Concomitant]
  17. HALCION [Concomitant]
     Indication: SLEEP DISORDER THERAPY

REACTIONS (2)
  - CELLULITIS [None]
  - PULMONARY TUBERCULOSIS [None]
